FAERS Safety Report 5766521-4 (Version None)
Quarter: 2008Q2

REPORT INFORMATION
  Report Type: 
  Country: None (occurrence: None)
  Receive Date: 20080612
  Receipt Date: 20080530
  Transmission Date: 20081010
  Serious: Yes (Hospitalization)
  Sender: FDA-Public Use
  Company Number: TW-ROCHE-534192

PATIENT
  Sex: Female

DRUGS (1)
  1. BONIVA [Suspect]
     Indication: DRUG USE FOR UNKNOWN INDICATION
     Dosage: STOP DATE: 2007.
     Route: 051
     Dates: start: 20071123

REACTIONS (3)
  - INJECTION SITE SWELLING [None]
  - LUNG NEOPLASM MALIGNANT [None]
  - PAIN [None]
